FAERS Safety Report 6545540-4 (Version None)
Quarter: 2010Q1

REPORT INFORMATION
  Report Type: 
  Country: None (occurrence: None)
  Receive Date: 20100119
  Receipt Date: 20100104
  Transmission Date: 20100710
  Serious: Yes (Hospitalization)
  Sender: FDA-Public Use
  Company Number: 1-21172480

PATIENT
  Age: 41 Year
  Sex: Female
  Weight: 68.0396 kg

DRUGS (6)
  1. FENTANYL-50 [Suspect]
     Indication: PAIN
     Dosage: 50 MCG/HR EVERY 72 HR, TRANSDERMAL
     Route: 062
     Dates: start: 20091227
  2. FENTANYL-50 [Suspect]
     Indication: SARCOIDOSIS
     Dosage: 50 MCG/HR EVERY 72 HR, TRANSDERMAL
     Route: 062
     Dates: start: 20091227
  3. PREDNISONE [Suspect]
     Dosage: 10 MG, ONCE DAILY, ORAL
     Route: 048
  4. ENDOCET (OXYCODONE AND ACETAMINOPHEN) ATIVAN (LORAZEPAM) [Concomitant]
  5. ZOFRAN [Concomitant]
  6. HUMIRA [Concomitant]

REACTIONS (6)
  - BLOOD GLUCOSE INCREASED [None]
  - CONDITION AGGRAVATED [None]
  - DRUG INEFFECTIVE [None]
  - PAIN [None]
  - SARCOIDOSIS [None]
  - WEIGHT INCREASED [None]
